FAERS Safety Report 6493972-5 (Version None)
Quarter: 2009Q4

REPORT INFORMATION
  Report Type: 
  Country: None (occurrence: None)
  Receive Date: 20091214
  Receipt Date: 20081203
  Transmission Date: 20100525
  Serious: Yes (Other)
  Sender: FDA-Public Use
  Company Number: US-BRISTOL-MYERS SQUIBB COMPANY-14428403

PATIENT
  Age: 44 Year
  Sex: Male
  Weight: 77 kg

DRUGS (3)
  1. ABILIFY [Suspect]
     Indication: DEPRESSION
  2. PRILOSEC [Concomitant]
  3. EFFEXOR [Concomitant]

REACTIONS (3)
  - CONVULSION [None]
  - HYPOAESTHESIA [None]
  - NEURALGIA [None]
